FAERS Safety Report 7077031-9 (Version None)
Quarter: 2010Q4

REPORT INFORMATION
  Report Type: 
  Country: None (occurrence: None)
  Receive Date: 20101101
  Receipt Date: 20101027
  Transmission Date: 20110411
  Serious: Yes (Hospitalization, Other)
  Sender: FDA-Public Use
  Company Number: DK-ROCHE-727201

PATIENT
  Sex: Female
  Weight: 58 kg

DRUGS (6)
  1. XELODA [Suspect]
     Indication: COLON CANCER
     Route: 048
     Dates: start: 20100820, end: 20100901
  2. OXALIPLATIN [Suspect]
     Indication: COLON CANCER
     Route: 042
     Dates: start: 20100820
  3. PREDNISOLONE [Concomitant]
     Route: 048
     Dates: start: 20100707
  4. PANTOLOC [Concomitant]
     Route: 048
     Dates: start: 20100707
  5. ONDANSETRON [Concomitant]
     Route: 048
     Dates: start: 20100820, end: 20100820
  6. EMPERAL [Concomitant]
     Indication: NAUSEA
     Route: 048
     Dates: start: 20100820

REACTIONS (3)
  - DIARRHOEA [None]
  - FEBRILE NEUTROPENIA [None]
  - NAUSEA [None]
